FAERS Safety Report 7092884-6 (Version None)
Quarter: 2010Q4

REPORT INFORMATION
  Report Type: 
  Country: None (occurrence: None)
  Receive Date: 20101110
  Receipt Date: 20101101
  Transmission Date: 20110411
  Serious: No
  Sender: FDA-Public Use
  Company Number: US-PFIZER INC-2010139373

PATIENT
  Sex: Female

DRUGS (1)
  1. LIPITOR [Suspect]
     Indication: BLOOD CHOLESTEROL INCREASED
     Dosage: 40 MG, 1X/DAY
     Route: 048
     Dates: end: 20101028

REACTIONS (5)
  - DYSPEPSIA [None]
  - NAUSEA [None]
  - PRODUCT ODOUR ABNORMAL [None]
  - PRODUCT TASTE ABNORMAL [None]
  - SNEEZING [None]
